FAERS Safety Report 6951813-3 (Version None)
Quarter: 2010Q3

REPORT INFORMATION
  Report Type: 
  Country: None (occurrence: None)
  Receive Date: 20100829
  Receipt Date: 20100413
  Transmission Date: 20110219
  Serious: No
  Sender: FDA-Public Use
  Company Number: US-ABBOTT-10P-163-0638490-00

PATIENT
  Sex: Male
  Weight: 79.904 kg

DRUGS (10)
  1. NIASPAN [Suspect]
     Indication: BLOOD CHOLESTEROL INCREASED
     Dosage: 500 MG DAILY AT BEDTIME- 1 DOSE
     Dates: start: 20100409, end: 20100410
  2. ALTACE [Concomitant]
     Indication: HYPERTENSION
  3. ALTACE [Concomitant]
     Indication: PROPHYLAXIS
  4. NORVASC [Concomitant]
     Indication: HYPERTENSION
  5. NORVASC [Concomitant]
     Indication: PROPHYLAXIS
  6. TRANDATE [Concomitant]
     Indication: HYPERTENSION
  7. TRANDATE [Concomitant]
     Indication: PROPHYLAXIS
  8. HYDROCHLOROTHIAZIDE [Concomitant]
     Indication: HYPERTENSION
  9. HYDROCHLOROTHIAZIDE [Concomitant]
     Indication: PROPHYLAXIS
  10. ZOCOR [Concomitant]
     Indication: PRODUCT USED FOR UNKNOWN INDICATION

REACTIONS (1)
  - STOMATITIS [None]
